FAERS Safety Report 8256344-9 (Version None)
Quarter: 2012Q2

REPORT INFORMATION
  Report Type: 
  Country: None (occurrence: None)
  Receive Date: 20120403
  Receipt Date: 20120326
  Transmission Date: 20120825
  Serious: Yes (Hospitalization, Disabling, Other)
  Sender: FDA-Public Use
  Company Number: US-BAYER-2011-082423

PATIENT
  Age: 32 Year
  Sex: Female
  Weight: 102.95 kg

DRUGS (10)
  1. HYDROCODONE [Concomitant]
     Dosage: UNK
     Dates: start: 20020615, end: 20100515
  2. ASPIRIN [Concomitant]
     Dosage: UNK
     Dates: start: 20010101, end: 20040101
  3. RHINOCORT [Concomitant]
     Dosage: UNK
     Dates: start: 20020101, end: 20040101
  4. ATENOLOL [Concomitant]
     Indication: BLOOD PRESSURE ABNORMAL
     Dosage: UNK UNK, QD
     Dates: start: 20010101, end: 20040101
  5. HYDROCHLOROTHIAZIDE [Concomitant]
     Indication: FLUID RETENTION
     Dosage: UNK
     Dates: start: 20010101, end: 20040101
  6. PREDNISONE [Concomitant]
     Dosage: UNK
     Dates: start: 20030922
  7. YASMIN [Suspect]
     Indication: CONTRACEPTION
     Dosage: UNK
     Dates: start: 20020725, end: 20040113
  8. AZITHROMYCIN [Concomitant]
     Dosage: UNK
     Dates: start: 20030801
  9. CLONIDIUM [Concomitant]
     Indication: GASTROOESOPHAGEAL REFLUX DISEASE
     Dosage: UNK UNK, QD
     Dates: start: 20031002
  10. PREVACID [Concomitant]
     Indication: GASTROOESOPHAGEAL REFLUX DISEASE
     Dosage: UNK UNK, QD
     Dates: start: 20030924

REACTIONS (20)
  - PAIN [None]
  - SPEECH DISORDER [None]
  - EMOTIONAL DISTRESS [None]
  - ASTHENIA [None]
  - FATIGUE [None]
  - GENERAL PHYSICAL HEALTH DETERIORATION [None]
  - ANGINA PECTORIS [None]
  - INSOMNIA [None]
  - DYSPNOEA [None]
  - MUSCLE SPASMS [None]
  - HYPOAESTHESIA [None]
  - PARAESTHESIA [None]
  - EXTRASYSTOLES [None]
  - INJURY [None]
  - ANXIETY [None]
  - VOMITING [None]
  - LUNG DISORDER [None]
  - DEPRESSION [None]
  - PULMONARY EMBOLISM [None]
  - CHEST PAIN [None]
